FAERS Safety Report 9322030 (Version 1)
Quarter: 2013Q2

REPORT INFORMATION
  Report Type: Spontaneous
  Country: CH (occurrence: CH)
  Receive Date: 20130531
  Receipt Date: 20130531
  Transmission Date: 20140414
  Serious: Yes (Other)
  Sender: FDA-Public Use
  Company Number: CH-JNJFOC-20130513375

PATIENT
  Sex: Male

DRUGS (9)
  1. RISPERDAL [Suspect]
     Indication: PRODUCT USED FOR UNKNOWN INDICATION
     Dosage: (1-0-0-4)
     Route: 065
  2. RISPERDAL [Suspect]
     Indication: PRODUCT USED FOR UNKNOWN INDICATION
     Dosage: (3-0-0-4)
     Route: 065
  3. DIPIPERON [Suspect]
     Indication: PRODUCT USED FOR UNKNOWN INDICATION
     Dosage: (0-0-0-1)
     Route: 065
  4. DEPAKINE CHRONO [Concomitant]
     Dosage: 300MG 1-0-0-1
     Route: 065
  5. DEPAKINE CHRONO [Concomitant]
     Route: 065
  6. AKINETON [Concomitant]
     Dosage: 1-0-0-1
     Route: 065
  7. AKINETON [Concomitant]
     Route: 065
  8. NOZINAN [Concomitant]
     Dosage: (0-0-0-1)
     Route: 065
  9. NOZINAN [Concomitant]
     Dosage: 0-0-0-1
     Route: 065

REACTIONS (10)
  - Extrapyramidal disorder [Recovered/Resolved]
  - Psychotic disorder [Unknown]
  - Physical disability [Unknown]
  - Restlessness [Unknown]
  - General physical condition abnormal [Not Recovered/Not Resolved]
  - Dyspnoea [Not Recovered/Not Resolved]
  - Flushing [Unknown]
  - Pallor [Unknown]
  - Depressive symptom [Not Recovered/Not Resolved]
  - Tension [Unknown]
